FAERS Safety Report 14856086 (Version 3)
Quarter: 2018Q3

REPORT INFORMATION
  Report Type: Spontaneous
  Country: US (occurrence: US)
  Receive Date: 20180507
  Receipt Date: 20180806
  Transmission Date: 20181010
  Serious: No
  Sender: FDA-Public Use
  Company Number: US-LEXICON PHARMACEUTICALS, INC-18-1606-00397

PATIENT
  Sex: Male

DRUGS (2)
  1. TELOTRISTAT ETHYL [Suspect]
     Active Substance: TELOTRISTAT ETHYL
     Indication: ADRENAL GLAND CANCER
     Route: 048
     Dates: start: 20170809, end: 20180124
  2. TELOTRISTAT ETHYL [Suspect]
     Active Substance: TELOTRISTAT ETHYL
     Indication: CARCINOID TUMOUR
     Route: 048
     Dates: start: 20180131

REACTIONS (5)
  - Blood pressure increased [Not Recovered/Not Resolved]
  - Social avoidant behaviour [Not Recovered/Not Resolved]
  - Renal impairment [Not Recovered/Not Resolved]
  - Radiation injury [Not Recovered/Not Resolved]
  - 5-hydroxyindolacetic acid in urine increased [Not Recovered/Not Resolved]

NARRATIVE: CASE EVENT DATE: 2018
